FAERS Safety Report 9996689 (Version 2)
Quarter: 2014Q1

REPORT INFORMATION
  Report Type: Spontaneous
  Country: GB (occurrence: GB)
  Receive Date: 20140311
  Receipt Date: 20140314
  Transmission Date: 20141002
  Serious: Yes (Other)
  Sender: FDA-Public Use
  Company Number: GB-PFIZER INC-2014067447

PATIENT
  Sex: Female

DRUGS (2)
  1. ATENOLOL [Suspect]
     Dosage: 25 MG, UNK
  2. ATENOLOL [Suspect]
     Dosage: 25 MG, UNK

REACTIONS (2)
  - Chromaturia [Unknown]
  - Gastrointestinal disorder [Unknown]
